FAERS Safety Report 4754187-1 (Version None)
Quarter: 2005Q3

REPORT INFORMATION
  Report Type: 
  Country: None (occurrence: None)
  Receive Date: 20050823
  Receipt Date: 20050420
  Transmission Date: 20060218
  Serious: Yes (Other)
  Sender: FDA-Public Use
  Company Number: PHEH2005US04587

PATIENT
  Age: 45 Year
  Sex: Female

DRUGS (5)
  1. LOTENSIN [Suspect]
     Indication: HYPERTENSION
     Dosage: ORAL
     Route: 048
     Dates: start: 20050303, end: 20050305
  2. WELLBUTRIN [Suspect]
     Indication: DEPRESSION
     Dates: start: 20050302, end: 20050305
  3. MULTIVITAMINS (ASCORBIC ACID, ERGOCALCIFEROL, FOLIC ACID, NICOTINAMIDE [Concomitant]
  4. CLARITIN [Concomitant]
  5. VITAMIN B (NO INGREDIENTS/SUBSTANCES) [Concomitant]

REACTIONS (15)
  - APPLICATION SITE DERMATITIS [None]
  - CHROMATURIA [None]
  - DIZZINESS [None]
  - FATIGUE [None]
  - HYPERSENSITIVITY [None]
  - NAUSEA [None]
  - OROPHARYNGEAL SWELLING [None]
  - RASH [None]
  - RASH MACULAR [None]
  - SKIN WRINKLING [None]
  - SWELLING [None]
  - SWOLLEN TONGUE [None]
  - THROAT IRRITATION [None]
  - TINNITUS [None]
  - VISION BLURRED [None]
